FAERS Safety Report 12783730 (Version 1)
Quarter: 2016Q3

REPORT INFORMATION
  Report Type: Report from Study
  Country: US (occurrence: US)
  Receive Date: 20160927
  Receipt Date: 20160927
  Transmission Date: 20161109
  Serious: Yes (Other)
  Sender: FDA-Public Use
  Company Number: US-JNJFOC-20160315963

PATIENT
  Age: 82 Year
  Sex: Male

DRUGS (11)
  1. IMBRUVICA [Suspect]
     Active Substance: IBRUTINIB
     Indication: CHRONIC LYMPHOCYTIC LEUKAEMIA
     Route: 048
  2. COUMADIN [Suspect]
     Active Substance: WARFARIN SODIUM
     Indication: PRODUCT USED FOR UNKNOWN INDICATION
  3. WARFARIN [Interacting]
     Active Substance: WARFARIN
     Indication: PRODUCT USED FOR UNKNOWN INDICATION
     Route: 048
  4. ZOCOR [Concomitant]
     Active Substance: SIMVASTATIN
  5. IMBRUVICA [Suspect]
     Active Substance: IBRUTINIB
     Indication: CHRONIC LYMPHOCYTIC LEUKAEMIA
     Route: 048
     Dates: start: 20150916
  6. ATENOLOL. [Concomitant]
     Active Substance: ATENOLOL
     Route: 048
  7. METFORMIN [Concomitant]
     Active Substance: METFORMIN HYDROCHLORIDE
  8. POTASSIUM [Concomitant]
     Active Substance: POTASSIUM
  9. KLOR-CON [Concomitant]
     Active Substance: POTASSIUM CHLORIDE
  10. LISINOPRIL. [Concomitant]
     Active Substance: LISINOPRIL
  11. ARMOUR THYROID [Concomitant]
     Active Substance: THYROID, PORCINE

REACTIONS (8)
  - Drug interaction [Unknown]
  - Thrombocytopenia [Unknown]
  - Weight decreased [Unknown]
  - Fatigue [Unknown]
  - Cholelithiasis [Recovered/Resolved]
  - Contusion [Unknown]
  - Peripheral artery occlusion [Unknown]
  - Cholecystitis [Unknown]

NARRATIVE: CASE EVENT DATE: 20150928
